FAERS Safety Report 24145405 (Version 1)
Quarter: 2024Q3

REPORT INFORMATION
  Report Type: Report from Study
  Country: US (occurrence: None)
  Receive Date: 20240729
  Receipt Date: 20240729
  Transmission Date: 20241016
  Serious: Yes (Other)
  Sender: ASTRAZENECA
  Company Number: 2021A789773

PATIENT
  Age: 930 Month
  Sex: Male

DRUGS (1)
  1. CALQUENCE [Suspect]
     Active Substance: ACALABRUTINIB
     Indication: Chronic lymphocytic leukaemia
     Route: 048
     Dates: start: 20210623

REACTIONS (4)
  - Deep vein thrombosis [Unknown]
  - Fluid retention [Unknown]
  - Fat tissue increased [Unknown]
  - Contusion [Unknown]

NARRATIVE: CASE EVENT DATE: 20211001
